FAERS Safety Report 8180241-0 (Version None)
Quarter: 2012Q1

REPORT INFORMATION
  Report Type: 
  Country: None (occurrence: None)
  Receive Date: 20120302
  Receipt Date: 20101027
  Transmission Date: 20120608
  Serious: No
  Sender: FDA-Public Use
  Company Number: US-GLAXOSMITHKLINE-A0853212A

PATIENT
  Age: 55 Year
  Sex: Female

DRUGS (6)
  1. MAXZIDE [Concomitant]
  2. CLOBETASOL PROPIONATE [Suspect]
     Indication: PSORIASIS
     Dosage: 1APP AS REQUIRED
     Route: 061
     Dates: start: 20000101
  3. OMEPRAZOLE [Concomitant]
  4. VITAMIN B-12 [Concomitant]
  5. CALCIUM [Concomitant]
  6. MULTI-VITAMINS [Concomitant]

REACTIONS (2)
  - HAIR DISORDER [None]
  - PRODUCT QUALITY ISSUE [None]
